FAERS Safety Report 23154524 (Version 2)
Quarter: 2023Q4

REPORT INFORMATION
  Report Type: Spontaneous
  Country: JP (occurrence: JP)
  Receive Date: 20231107
  Receipt Date: 20231117
  Transmission Date: 20240109
  Serious: Yes (Other)
  Sender: FDA-Public Use
  Company Number: JP-Teva Takeda Yakuhin-2023-JP-002465J

PATIENT
  Sex: Female

DRUGS (1)
  1. LANSOPRAZOLE [Suspect]
     Active Substance: LANSOPRAZOLE
     Indication: Helicobacter infection
     Dosage: DOSAGE IS UNKNOWN
     Route: 050

REACTIONS (4)
  - Gastric ulcer haemorrhage [Recovering/Resolving]
  - Brain compression [Recovering/Resolving]
  - Blood pressure increased [Unknown]
  - Abdominal rigidity [Unknown]
